FAERS Safety Report 9566717 (Version 1)
Quarter: 2013Q3

REPORT INFORMATION
  Report Type: Spontaneous
  Country: US (occurrence: US)
  Receive Date: 20130930
  Receipt Date: 20130930
  Transmission Date: 20140515
  Serious: No
  Sender: FDA-Public Use
  Company Number: US-AMGEN-USASP2012063106

PATIENT
  Sex: Female
  Weight: 5.67 kg

DRUGS (3)
  1. ENBREL [Suspect]
     Dosage: 50 MG, QWK
     Route: 064
     Dates: start: 20070312, end: 20110810
  2. ENBREL [Suspect]
     Dosage: 50 MG, QWK
     Route: 064
     Dates: start: 20070312, end: 20110810
  3. PRENATAL VITAMINS                  /02014401/ [Concomitant]
     Dosage: UNK UNK, QD
     Route: 064
     Dates: start: 201108, end: 201205

REACTIONS (2)
  - Eczema [Recovered/Resolved]
  - Oral candidiasis [Recovered/Resolved]
